FAERS Safety Report 8399121-0 (Version None)
Quarter: 2012Q2

REPORT INFORMATION
  Report Type: 
  Country: None (occurrence: None)
  Receive Date: 20120531
  Receipt Date: 20120522
  Transmission Date: 20120825
  Serious: Yes (Other)
  Sender: FDA-Public Use
  Company Number: US-ASTRAZENECA-2012SE30446

PATIENT
  Age: 60 Year
  Sex: Female
  Weight: 100.2 kg

DRUGS (8)
  1. PRAZOSIN HCL [Concomitant]
     Indication: NIGHTMARE
     Dosage: 1 DF QHS
  2. DEPAKOTE [Concomitant]
     Dosage: 2 DF QHS
     Route: 048
     Dates: start: 20120514
  3. SEROQUEL XR [Suspect]
     Indication: DEPRESSION
     Route: 048
     Dates: start: 20120504, end: 20120509
  4. FOCALIN XR [Concomitant]
     Dosage: 1 DF QAM
     Route: 048
     Dates: start: 20110922
  5. MEDICATION FOR NIGHTMARE [Concomitant]
  6. ZOFRAN ODT [Concomitant]
     Indication: NAUSEA
     Dosage: 1 DF Q8 HRS PRN
     Route: 048
  7. VIIBRYD [Concomitant]
     Indication: DEPRESSION
     Dosage: 1 DF QAM 1/2 DF QPM
     Route: 048
     Dates: start: 20110823
  8. ZOLPIDEM [Concomitant]
     Indication: INSOMNIA
     Dosage: 1 1/2 Q HS PRN
     Route: 048

REACTIONS (4)
  - INTENTIONAL DRUG MISUSE [None]
  - ASTHMA [None]
  - DEPRESSION [None]
  - HYPERSENSITIVITY [None]
